FAERS Safety Report 25810685 (Version 1)
Quarter: 2025Q3

REPORT INFORMATION
  Report Type: Spontaneous
  Country: CA (occurrence: CA)
  Receive Date: 20250917
  Receipt Date: 20250917
  Transmission Date: 20251021
  Serious: Yes (Hospitalization)
  Sender: ROCHE
  Company Number: CA-ROCHE-10000384924

PATIENT
  Age: 56 Year
  Sex: Female
  Weight: 101 kg

DRUGS (16)
  1. AVASTIN [Suspect]
     Active Substance: BEVACIZUMAB
     Indication: Ovarian cancer
     Route: 042
  2. ACETAMINOPHEN [Concomitant]
     Active Substance: ACETAMINOPHEN
  3. AMLODIPINE [Concomitant]
     Active Substance: AMLODIPINE BESYLATE
  4. DOXORUBICIN HYDROCHLORIDE [Concomitant]
     Active Substance: DOXORUBICIN HYDROCHLORIDE
  5. CALCIUM CARBONATE [Concomitant]
     Active Substance: CALCIUM CARBONATE
  6. DULOXETINE [Concomitant]
     Active Substance: DULOXETINE
  7. ERYTHROMYCIN [Concomitant]
     Active Substance: ERYTHROMYCIN
  8. FOLIC ACID [Concomitant]
     Active Substance: FOLIC ACID
  9. FUROSEMIDE [Concomitant]
     Active Substance: FUROSEMIDE
  10. HYDRALAZINE [Concomitant]
     Active Substance: HYDRALAZINE HYDROCHLORIDE
  11. LABETALOL [Concomitant]
     Active Substance: LABETALOL
  12. LORAZEPAM [Concomitant]
     Active Substance: LORAZEPAM
  13. METOCLOPRAMIDE [Concomitant]
     Active Substance: METOCLOPRAMIDE
  14. MIRTAZAPINE [Concomitant]
     Active Substance: MIRTAZAPINE
  15. NIFEDIPINE [Concomitant]
     Active Substance: NIFEDIPINE
  16. ONDANSETRON [Concomitant]
     Active Substance: ONDANSETRON

REACTIONS (7)
  - Acute kidney injury [Not Recovered/Not Resolved]
  - Bicytopenia [Not Recovered/Not Resolved]
  - Hypertensive emergency [Not Recovered/Not Resolved]
  - Microangiopathy [Not Recovered/Not Resolved]
  - Pericardial effusion [Not Recovered/Not Resolved]
  - Pleural effusion [Not Recovered/Not Resolved]
  - Toxicity to various agents [Not Recovered/Not Resolved]
